FAERS Safety Report 11788927 (Version 1)
Quarter: 2015Q4

REPORT INFORMATION
  Report Type: Spontaneous
  Country: BE (occurrence: BE)
  Receive Date: 20151201
  Receipt Date: 20151201
  Transmission Date: 20160305
  Serious: Yes (Other)
  Sender: FDA-Public Use
  Company Number: BE-WATSON-2015-19003

PATIENT
  Sex: Female

DRUGS (1)
  1. LEVOSERT [Suspect]
     Active Substance: LEVONORGESTREL
     Indication: PRODUCT USED FOR UNKNOWN INDICATION
     Dosage: 20 ?G, Q24H
     Route: 015
     Dates: start: 20150806

REACTIONS (2)
  - Post abortion haemorrhage [Unknown]
  - Device expulsion [Unknown]

NARRATIVE: CASE EVENT DATE: 20150813
